FAERS Safety Report 21015657 (Version 1)
Quarter: 2022Q2

REPORT INFORMATION
  Report Type: Spontaneous
  Country: US (occurrence: US)
  Receive Date: 20220628
  Receipt Date: 20220628
  Transmission Date: 20220720
  Serious: No
  Sender: FDA-Public Use
  Company Number: US-PFIZER INC-202200877038

PATIENT
  Age: 67 Year
  Sex: Female
  Weight: 58.97 kg

DRUGS (1)
  1. PREMARIN [Suspect]
     Active Substance: ESTROGENS, CONJUGATED
     Indication: Urinary tract infection
     Dosage: A PEA SIZED AMOUNT

REACTIONS (6)
  - Vulvovaginal burning sensation [Recovered/Resolved]
  - Vulvovaginal pain [Recovered/Resolved]
  - Urinary tract infection [Recovering/Resolving]
  - Condition aggravated [Recovering/Resolving]
  - Vulvovaginal dryness [Unknown]
  - Off label use [Unknown]

NARRATIVE: CASE EVENT DATE: 20220601
